FAERS Safety Report 17993633 (Version 1)
Quarter: 2020Q3

REPORT INFORMATION
  Report Type: Spontaneous
  Country: US (occurrence: US)
  Receive Date: 20200707
  Receipt Date: 20200707
  Transmission Date: 20201103
  Serious: Yes (Hospitalization)
  Sender: FDA-Public Use
  Company Number: None

PATIENT
  Age: 63 Year
  Sex: Male

DRUGS (1)
  1. METHOCARBAMOL (METHOCARBAMOL 500MG TAB) [Suspect]
     Active Substance: METHOCARBAMOL
     Indication: HYPOTONIA
     Route: 048
     Dates: start: 20191218

REACTIONS (3)
  - Dizziness [None]
  - Seizure [None]
  - Confusional state [None]

NARRATIVE: CASE EVENT DATE: 20191228
